FAERS Safety Report 23051039 (Version 1)
Quarter: 2023Q4

REPORT INFORMATION
  Report Type: Spontaneous
  Country: US (occurrence: US)
  Receive Date: 20231010
  Receipt Date: 20231010
  Transmission Date: 20240110
  Serious: No
  Sender: FDA-Public Use
  Company Number: US-SA-SAC20231005000689

PATIENT
  Age: 20 Year
  Sex: Male

DRUGS (1)
  1. DUPIXENT [Suspect]
     Active Substance: DUPILUMAB
     Indication: Asthma
     Dosage: DOSE OR AMOUNT: 600 MG FREQUENCY: LOADING DOSE
     Route: 058
     Dates: start: 202308

REACTIONS (2)
  - Sleep disorder [Unknown]
  - Dyspnoea [Unknown]
